FAERS Safety Report 21897651 (Version 1)
Quarter: 2023Q1

REPORT INFORMATION
  Report Type: Spontaneous
  Country: US (occurrence: US)
  Receive Date: 20230123
  Receipt Date: 20230123
  Transmission Date: 20230417
  Serious: No
  Sender: FDA-Public Use
  Company Number: US-SA-SAC20230119001007

PATIENT
  Age: 32 Year
  Sex: Female
  Weight: 59.8 kg

DRUGS (1)
  1. FABRAZYME [Suspect]
     Active Substance: AGALSIDASE BETA
     Indication: Fabry^s disease
     Dosage: 60 MG QOW
     Route: 041
     Dates: start: 202212

REACTIONS (1)
  - Weight decreased [Unknown]
